FAERS Safety Report 20994788 (Version 6)
Quarter: 2022Q3

REPORT INFORMATION
  Report Type: Report from Study
  Country: NL (occurrence: NL)
  Receive Date: 20220622
  Receipt Date: 20220831
  Transmission Date: 20221027
  Serious: Yes (Death, Hospitalization, Other)
  Sender: FDA-Public Use
  Company Number: NL-TAKEDA-2022TUS041651

PATIENT
  Age: 67 Year
  Sex: Male

DRUGS (1)
  1. MOBOCERTINIB [Suspect]
     Active Substance: MOBOCERTINIB
     Indication: Non-small cell lung cancer stage IV
     Dosage: 160 MILLIGRAM, QD
     Route: 048
     Dates: start: 20220505, end: 20220616

REACTIONS (5)
  - Cerebrovascular accident [Fatal]
  - COVID-19 [Fatal]
  - Seizure [Unknown]
  - Spinal compression fracture [Unknown]
  - Cerebral ischaemia [Unknown]

NARRATIVE: CASE EVENT DATE: 20220616
